FAERS Safety Report 5991194-5 (Version None)
Quarter: 2008Q4

REPORT INFORMATION
  Report Type: 
  Country: None (occurrence: None)
  Receive Date: 20081211
  Receipt Date: 20081106
  Transmission Date: 20090506
  Serious: Yes (Hospitalization)
  Sender: FDA-Public Use
  Company Number: US-ASTRAZENECA-2008UW22519

PATIENT
  Age: 82 Year
  Sex: Female
  Weight: 52.6 kg

DRUGS (1)
  1. NEXIUM [Suspect]
     Indication: GASTROOESOPHAGEAL REFLUX DISEASE
     Route: 048

REACTIONS (9)
  - LIP SWELLING [None]
  - PAIN [None]
  - PARALYSIS [None]
  - PRURITUS [None]
  - PYREXIA [None]
  - RASH [None]
  - SWOLLEN TONGUE [None]
  - VISION BLURRED [None]
  - VOMITING [None]
